FAERS Safety Report 5771585-8 (Version None)
Quarter: 2008Q2

REPORT INFORMATION
  Report Type: 
  Country: None (occurrence: None)
  Receive Date: 20080611
  Receipt Date: 20080519
  Transmission Date: 20081010
  Serious: Yes (Other)
  Sender: FDA-Public Use
  Company Number: 8033336

PATIENT
  Age: 64 Year
  Sex: Female

DRUGS (1)
  1. PREDNISOLONE [Suspect]
     Indication: IDIOPATHIC THROMBOCYTOPENIC PURPURA

REACTIONS (12)
  - ASCITES [None]
  - CASTLEMAN'S DISEASE [None]
  - HAEMANGIOMA [None]
  - LYMPHADENOPATHY [None]
  - OEDEMA PERIPHERAL [None]
  - PAROTID GLAND ENLARGEMENT [None]
  - PLEURAL EFFUSION [None]
  - POEMS SYNDROME [None]
  - PROTEIN URINE PRESENT [None]
  - RASH PAPULAR [None]
  - SJOGREN'S SYNDROME [None]
  - TYPE 2 DIABETES MELLITUS [None]
